FAERS Safety Report 7748994-0 (Version None)
Quarter: 2011Q3

REPORT INFORMATION
  Report Type: 
  Country: None (occurrence: None)
  Receive Date: 20110909
  Receipt Date: 20110826
  Transmission Date: 20111222
  Serious: Yes (Other)
  Sender: FDA-Public Use
  Company Number: TPA2011A05296

PATIENT
  Age: 65 Year
  Sex: Male

DRUGS (12)
  1. PLAVIX [Concomitant]
  2. LISINOPRIL [Concomitant]
  3. AMLODIPINE [Concomitant]
  4. HYDROCHLOROTHIAZIDE [Concomitant]
  5. METOPROLOL TARTRATE [Concomitant]
  6. ACTOS [Suspect]
     Dosage: 15 MG, 1 IN 1 D, PER ORAL
     Route: 048
  7. LOSARTAN POTASSIUM [Concomitant]
  8. UROXATRAL [Concomitant]
  9. ISOSORBIDE (ISOSORBIDE) [Concomitant]
  10. INSULIN 70/30 (INSULIN) [Concomitant]
  11. LIPITOR (ATORVASTATATIN CALCIUM) [Concomitant]
  12. METFORMIN HCL [Concomitant]

REACTIONS (2)
  - BLADDER CANCER [None]
  - RENAL CANCER [None]
